FAERS Safety Report 9656670 (Version 4)
Quarter: 2014Q2

REPORT INFORMATION
  Report Type: Report from Study
  Country: US (occurrence: US)
  Receive Date: 20131030
  Receipt Date: 20140410
  Transmission Date: 20141212
  Serious: Yes (Hospitalization, Other)
  Sender: FDA-Public Use
  Company Number: US-PFIZER INC-2013306223

PATIENT
  Age: 74 Year
  Sex: Female
  Weight: 79.82 kg

DRUGS (40)
  1. PLACEBO [Suspect]
     Indication: CEREBROVASCULAR ACCIDENT
     Dosage: 0 MG 1X/DAY
     Route: 048
     Dates: start: 20131016
  2. DILTIAZEM [Suspect]
     Dosage: 2.5-2.0 MG/HR TITRATE, CONTINUOUS
     Route: 042
     Dates: start: 20131014, end: 20131015
  3. DILTIAZEM [Suspect]
     Dosage: 30 MG, Q6H
     Route: 048
     Dates: start: 20131016, end: 20131022
  4. DILTIAZEM [Suspect]
     Dosage: 45 MG, Q6H
     Route: 048
     Dates: start: 20131022, end: 20131023
  5. PROPANOLOL HCL [Suspect]
     Dosage: 60MG, Q6H
     Route: 048
     Dates: start: 20131019, end: 20131023
  6. ASPIRIN/ACETYLSALICYLIC ACID [Concomitant]
     Dosage: 81 MG, 1X/DAY
     Route: 048
  7. ATENOLOL [Concomitant]
     Dosage: UNK MG, 1X/DAY
     Route: 048
  8. IMITREX [Concomitant]
     Dosage: MG
     Route: 048
  9. RANITIDINE HYDROCHLORIDE [Concomitant]
     Dosage: UNKMG, BID
     Route: 048
  10. INSULIN REGULAR LNJECLION [Concomitant]
     Dosage: 0-10 UNITS, TID
     Route: 058
     Dates: start: 20131013, end: 20131015
  11. NS+POTASSIUM CHLORIDE [Concomitant]
     Dosage: 20 MEQ/L, AT 20ML/HR, CONTINUOUS
     Route: 042
     Dates: start: 20131013, end: 20131013
  12. PHENYLEPHRINE HYDROCHLORIDE [Concomitant]
     Dosage: 10-1000 MCG/MIN, TITRATED, CONTINUOUS INFUSION
     Route: 042
     Dates: start: 20131013, end: 20131013
  13. D5 NS [Concomitant]
     Dosage: 20 MEQ/L, AT 20ML/HR, CONTINUOUS
     Route: 042
     Dates: start: 20131013, end: 20131015
  14. MAGNESIUM SULFATE INJ [Concomitant]
     Dosage: 2 G, PRN
     Route: 042
     Dates: start: 20131013, end: 20131016
  15. CALCIUM GLUCONATE 10% [Concomitant]
     Dosage: 2000 MG, PRN
     Route: 042
     Dates: start: 20131013, end: 20131016
  16. INFLUENZA VACCINE [Concomitant]
     Dosage: 0.5 ML, X1
     Route: 030
     Dates: start: 20131017, end: 20131017
  17. FAMOTIDINE [Concomitant]
     Dosage: 20 MG, Q12H
     Route: 042
     Dates: start: 20131014
  18. ACETAMINOPHEN [Concomitant]
     Dosage: 325-650 MG, PRN
     Route: 048
     Dates: start: 20131014
  19. METOPROLOL TARTRATE [Concomitant]
     Dosage: 12.5 MG, Q8H
     Route: 048
     Dates: start: 20131014, end: 20131014
  20. METOPROLOL TARTRATE [Concomitant]
     Dosage: 25 MG, Q8H
     Route: 048
     Dates: start: 20131015, end: 20131015
  21. METOPROLOL TARTRATE [Concomitant]
     Dosage: 37.5 MG, Q6H
     Route: 048
     Dates: start: 20131015, end: 20131015
  22. METOPROLOL TARTRATE [Concomitant]
     Dosage: 75 MG, Q6H
     Route: 048
     Dates: start: 20131015, end: 20131018
  23. METOPROLOL TARTRATE [Concomitant]
     Dosage: 75 MG, Q6H
     Route: 048
     Dates: start: 20131015, end: 20131019
  24. METOPROLOL TARTRATE [Concomitant]
     Dosage: 5 MG, X1
     Route: 042
     Dates: start: 20131014, end: 20131014
  25. METOPROLOL TARTRATE [Concomitant]
     Dosage: 10 MG, X1
     Route: 042
     Dates: start: 20131015, end: 20131015
  26. METOPROLOL TARTRATE [Concomitant]
     Dosage: 25 MG,X1
     Route: 048
     Dates: start: 20131022, end: 20131022
  27. NS [Concomitant]
     Dosage: 1000 ML, PRN
     Route: 042
     Dates: start: 20131013, end: 20131014
  28. NS [Concomitant]
     Dosage: 500 ML, PRN
     Route: 042
     Dates: start: 20131014
  29. POTASSIUM PHOSPHATE [Concomitant]
     Dosage: 15 MMOL, X1
     Route: 042
     Dates: start: 20131015, end: 20131015
  30. FIORICET [Concomitant]
     Dosage: 0.5 TAB, PRN
     Route: 048
     Dates: start: 20131015
  31. ATORVASTATIN [Concomitant]
     Dosage: 80 MG, QPM
     Route: 048
     Dates: start: 20131014, end: 20131014
  32. DIGOXIN [Concomitant]
     Dosage: 0.375 MG, 1X
     Route: 042
     Dates: start: 20131015, end: 20131015
  33. DIGOXIN [Concomitant]
     Dosage: 0.2 MG, Q6H
     Route: 042
     Dates: start: 20131016, end: 20131016
  34. FUROSEMIDE INJ [Concomitant]
     Dosage: 20 MG, X1
     Route: 042
     Dates: start: 20131014, end: 20131014
  35. PNEUMOCOCCAL VACCINE POLYVALENT [Concomitant]
     Dosage: 0.5 ML, X1
     Route: 030
     Dates: start: 20131017, end: 20131017
  36. ENOXAPARIN [Concomitant]
     Dosage: 40 MG, QD
     Route: 058
     Dates: start: 20131017
  37. DOCUSATE SODIUM [Concomitant]
     Dosage: 100 MG, PRN
     Route: 048
     Dates: start: 20131019
  38. SENNOSIDES [Concomitant]
     Dosage: 2 TAB, 2X/DAY
     Route: 048
     Dates: start: 20131019, end: 20131022
  39. SIMVASTATIN [Concomitant]
     Dosage: 20 MG, QPM
     Route: 048
     Dates: start: 20131021, end: 20131021
  40. ROSUVASTATIN [Concomitant]
     Dosage: 5 MG, QPM
     Route: 048
     Dates: start: 20131022

REACTIONS (1)
  - Cardiac arrest [Recovered/Resolved]
